FAERS Safety Report 7383428-X (Version None)
Quarter: 2011Q1

REPORT INFORMATION
  Report Type: 
  Country: None (occurrence: None)
  Receive Date: 20110330
  Receipt Date: 20110318
  Transmission Date: 20110831
  Serious: Yes (Other)
  Sender: FDA-Public Use
  Company Number: US-JNJFOC-20110309559

PATIENT
  Sex: Female

DRUGS (1)
  1. LISTERINE MOUTHWASH (UNSPECIFIED) [Suspect]
     Indication: PRODUCT USED FOR UNKNOWN INDICATION
     Route: 048

REACTIONS (2)
  - ORAL DISCOMFORT [None]
  - OROPHARYNGEAL BLISTERING [None]
